FAERS Safety Report 9554325 (Version 2)
Quarter: 2013Q3

REPORT INFORMATION
  Report Type: Spontaneous
  Country: DK (occurrence: JP)
  Receive Date: 20130925
  Receipt Date: 20130925
  Transmission Date: 20140515
  Serious: Yes (Hospitalization, Other)
  Sender: FDA-Public Use
  Company Number: JP-FRI-1000048416

PATIENT
  Age: 64 Year
  Sex: Female
  Weight: 44 kg

DRUGS (7)
  1. LEXAPRO [Suspect]
     Indication: SOMATOFORM DISORDER
     Dosage: 10 MG
     Route: 048
     Dates: start: 20130613, end: 20130626
  2. GASMOTIN [Suspect]
     Indication: NAUSEA
     Dosage: 15 MG
     Route: 048
     Dates: start: 20130613, end: 20130626
  3. CONSTAN [Suspect]
     Route: 048
     Dates: start: 20130614
  4. LENDORMIN [Suspect]
     Route: 048
     Dates: start: 20130614
  5. LENDORMIN [Suspect]
     Dosage: 0.25 MG
     Route: 048
     Dates: start: 20130614
  6. OLMETEC [Concomitant]
     Indication: HYPERTENSION
     Dosage: 40 MG
     Route: 048
     Dates: start: 20120928, end: 20130629
  7. METHYCOBAL [Concomitant]
     Indication: NEUROPATHY PERIPHERAL
     Dosage: 1500 MG
     Route: 048
     Dates: start: 20121026

REACTIONS (5)
  - Hyponatraemia [Recovered/Resolved]
  - Urinary retention [Recovered/Resolved]
  - Off label use [Unknown]
  - Decreased appetite [Recovered/Resolved]
  - Dehydration [Recovered/Resolved]
